FAERS Safety Report 7002147-2 (Version None)
Quarter: 2010Q3

REPORT INFORMATION
  Report Type: 
  Country: None (occurrence: None)
  Receive Date: 20100920
  Receipt Date: 20091023
  Transmission Date: 20110219
  Serious: No
  Sender: FDA-Public Use
  Company Number: US-ASTRAZENECA-2009SE22317

PATIENT
  Age: 50 Year
  Sex: Female

DRUGS (1)
  1. SEROQUEL [Suspect]
     Route: 048
     Dates: start: 20050127, end: 20050322

REACTIONS (5)
  - BALANCE DISORDER [None]
  - CONTUSION [None]
  - COORDINATION ABNORMAL [None]
  - FALL [None]
  - JOINT SPRAIN [None]
